FAERS Safety Report 25453303 (Version 1)
Quarter: 2025Q2

REPORT INFORMATION
  Report Type: Report from Study
  Country: SI (occurrence: SI)
  Receive Date: 20250618
  Receipt Date: 20250618
  Transmission Date: 20250716
  Serious: Yes (Death)
  Sender: CELLTRION
  Company Number: SI-CELLTRION INC.-2024SI002390

PATIENT

DRUGS (5)
  1. BEVACIZUMAB [Suspect]
     Active Substance: BEVACIZUMAB
     Indication: Hepatocellular carcinoma
     Route: 065
     Dates: start: 20211130
  2. ATEZOLIZUMAB [Suspect]
     Active Substance: ATEZOLIZUMAB
     Indication: Hepatocellular carcinoma
     Route: 042
     Dates: start: 20211130
  3. PANTOPRAZOLE [Concomitant]
     Active Substance: PANTOPRAZOLE
     Indication: Prophylaxis
  4. SORAFENIB [Concomitant]
     Active Substance: SORAFENIB
     Dates: start: 20230103
  5. PERINDOPRIL [Concomitant]
     Active Substance: PERINDOPRIL
     Indication: Adverse event
     Dates: start: 20230131

REACTIONS (3)
  - Death [Fatal]
  - Hypertension [Recovering/Resolving]
  - Intentional product use issue [Unknown]

NARRATIVE: CASE EVENT DATE: 20230131
